FAERS Safety Report 11167227 (Version 2)
Quarter: 2015Q2

REPORT INFORMATION
  Report Type: Spontaneous
  Country: FR (occurrence: FR)
  Receive Date: 20150605
  Receipt Date: 20150611
  Transmission Date: 20150821
  Serious: Yes (Other)
  Sender: FDA-Public Use
  Company Number: FR-JNJFOC-20150520556

PATIENT
  Age: 10 Year
  Sex: Female

DRUGS (1)
  1. KETODERM [Suspect]
     Active Substance: KETOCONAZOLE
     Indication: DERMATOPHYTOSIS
     Route: 003
     Dates: start: 20141222, end: 20141229

REACTIONS (1)
  - Eczema [Recovered/Resolved]

NARRATIVE: CASE EVENT DATE: 20141229
